FAERS Safety Report 11773867 (Version 1)
Quarter: 2015Q4

REPORT INFORMATION
  Report Type: Spontaneous
  Country: US (occurrence: None)
  Receive Date: 20151124
  Receipt Date: 20151124
  Transmission Date: 20160304
  Serious: No
  Sender: FDA-Public Use
  Company Number: US-MDT-ADR-2015-02224

PATIENT
  Age: 44 Year
  Sex: Male

DRUGS (2)
  1. BACLOFEN INTRATHECAL 100 MCG/ML [Suspect]
     Active Substance: BACLOFEN
     Indication: MUSCLE SPASTICITY
     Dosage: 4.8 MCG/DAY
  2. BACLOFEN. [Suspect]
     Active Substance: BACLOFEN
     Dosage: 10 MG TWICE A DAY

REACTIONS (2)
  - No therapeutic response [None]
  - Device power source issue [None]
